FAERS Safety Report 9924689 (Version 1)
Quarter: 2014Q1

REPORT INFORMATION
  Report Type: Report from Study
  Country: US (occurrence: US)
  Receive Date: 20140226
  Receipt Date: 20140226
  Transmission Date: 20141002
  Serious: Yes (Other)
  Sender: FDA-Public Use
  Company Number: US-ROCHE-1330351

PATIENT
  Sex: Female
  Weight: 74 kg

DRUGS (10)
  1. LUCENTIS [Suspect]
     Indication: AGE-RELATED MACULAR DEGENERATION
     Route: 050
     Dates: start: 20060911
  2. AVASTIN [Suspect]
     Indication: PRODUCT USED FOR UNKNOWN INDICATION
     Route: 031
     Dates: start: 20080505, end: 20090803
  3. ADVAIR DISKUS [Concomitant]
  4. ASPIRIN [Concomitant]
  5. FISH OIL [Concomitant]
  6. LISINOPRIL [Concomitant]
  7. PRESERVISION AREDS [Concomitant]
  8. PHENYLEPHRINE [Concomitant]
  9. TROPICAMIDE [Concomitant]
  10. PROPARACAINE [Concomitant]

REACTIONS (8)
  - Macular oedema [Unknown]
  - Visual acuity reduced [Unknown]
  - Macular fibrosis [Unknown]
  - Macular degeneration [Unknown]
  - Visual field defect [Unknown]
  - Macular hole [Unknown]
  - Retinal degeneration [Unknown]
  - Retinal depigmentation [Unknown]
